FAERS Safety Report 7328588-1 (Version None)
Quarter: 2011Q1

REPORT INFORMATION
  Report Type: 
  Country: None (occurrence: None)
  Receive Date: 20110225
  Receipt Date: 20110225
  Transmission Date: 20110831
  Serious: Yes (Hospitalization)
  Sender: FDA-Public Use
  Company Number: None

PATIENT
  Age: 51 Year
  Sex: Female
  Weight: 93 kg

DRUGS (11)
  1. WELLBUTRIN XL [Concomitant]
  2. LORTAB [Concomitant]
  3. VALPROIC ACID [Suspect]
     Indication: COLON CANCER STAGE IV
     Dosage: 250-500MG TID PO
     Route: 048
     Dates: start: 20110112, end: 20110224
  4. HYDRALAZINE 50MG PAR PHARMACEUTICAL [Suspect]
     Indication: COLON CANCER STAGE IV
     Dosage: 50MG QID PO
     Route: 048
     Dates: start: 20110112, end: 20110222
  5. PIOGLITAZONE [Concomitant]
  6. LEVOTHYROXINE [Concomitant]
  7. LIPITOR [Concomitant]
  8. K-DUR [Concomitant]
  9. LACTULOSE [Concomitant]
  10. DURAGESIC-12 TRANSDERMAL FILM EXTENDED RELEASE [Concomitant]
  11. GLIMPERIDE [Concomitant]

REACTIONS (6)
  - BLOOD GLUCOSE DECREASED [None]
  - ELECTROLYTE IMBALANCE [None]
  - SKIN TURGOR DECREASED [None]
  - ANURIA [None]
  - MUCOSAL DRYNESS [None]
  - URINARY TRACT INFECTION [None]
